FAERS Safety Report 18061096 (Version 1)
Quarter: 2020Q3

REPORT INFORMATION
  Report Type: Spontaneous
  Country: DK (occurrence: DK)
  Receive Date: 20200723
  Receipt Date: 20200723
  Transmission Date: 20201103
  Serious: Yes (Disabling)
  Sender: FDA-Public Use
  Company Number: NVSC2020DK201120

PATIENT
  Age: 71 Year
  Sex: Male

DRUGS (2)
  1. MAXIDEX [Suspect]
     Active Substance: DEXAMETHASONE
     Indication: EYE INFLAMMATION
     Dosage: 3 DRP, QD (STYRKE: 1MG/ML)
     Route: 050
     Dates: start: 20190712, end: 20190807
  2. ACULAR [Concomitant]
     Active Substance: KETOROLAC TROMETHAMINE
     Indication: EYE INFLAMMATION
     Dosage: 3 DRP, QD (STYRKE: 5 MG/ML)
     Route: 050
     Dates: start: 20190712

REACTIONS (4)
  - Keratitis [Recovered/Resolved with Sequelae]
  - Visual impairment [Not Recovered/Not Resolved]
  - Eye pain [Recovering/Resolving]
  - Foreign body sensation in eyes [Unknown]

NARRATIVE: CASE EVENT DATE: 201908
